FAERS Safety Report 6186479-6 (Version None)
Quarter: 2009Q2

REPORT INFORMATION
  Report Type: 
  Country: None (occurrence: None)
  Receive Date: 20090512
  Receipt Date: 20090430
  Transmission Date: 20091009
  Serious: Yes (Other)
  Sender: FDA-Public Use
  Company Number: IN-RANBAXY-2009RR-23776

PATIENT
  Age: 35 Year
  Sex: Male

DRUGS (3)
  1. ZIDOVUDINE [Suspect]
  2. LAMIVUDINE [Suspect]
  3. ABACAVIR SULFATE [Suspect]

REACTIONS (1)
  - IMMUNE RECONSTITUTION SYNDROME [None]
